FAERS Safety Report 8560227-4 (Version None)
Quarter: 2012Q3

REPORT INFORMATION
  Report Type: 
  Country: None (occurrence: None)
  Receive Date: 20120802
  Receipt Date: 20120727
  Transmission Date: 20120928
  Serious: Yes (Other)
  Sender: FDA-Public Use
  Company Number: US-PFIZER INC-2012127337

PATIENT
  Sex: Female

DRUGS (7)
  1. ROBITUSSIN COUGH AND CHEST CONGESTION DM [Suspect]
     Indication: COUGH
     Dosage: 5-10 CC, QID, PRN, TOOK ONLY ONE DOSE.
     Route: 048
     Dates: start: 20120525, end: 20120525
  2. ROBITUSSIN COUGH AND CHEST CONGESTION DM [Suspect]
     Dosage: UNK
     Dates: start: 20120525, end: 20120525
  3. ZITHROMAX [Concomitant]
     Indication: UPPER RESPIRATORY TRACT INFECTION
     Dosage: UNK
     Dates: start: 20120525, end: 20120530
  4. ASTEPRO [Concomitant]
     Dosage: UNK
  5. QUINAPRIL [Concomitant]
     Dosage: UNK
  6. VERAPAMIL [Concomitant]
     Dosage: UNK
  7. NEXIUM [Concomitant]
     Dosage: UNK

REACTIONS (2)
  - DIZZINESS [None]
  - BLOOD PRESSURE INCREASED [None]
